FAERS Safety Report 9201959 (Version 1)
Quarter: 2013Q1

REPORT INFORMATION
  Report Type: Spontaneous
  Country: JP (occurrence: None)
  Receive Date: 20130327
  Receipt Date: 20130327
  Transmission Date: 20140127
  Serious: Yes (Other)
  Sender: FDA-Public Use
  Company Number: JP-20130023

PATIENT
  Sex: Female

DRUGS (2)
  1. LIPIODOL ULTRA FLUIDE (ETHIODIZED OIL) [Suspect]
     Route: 014
  2. NBCA (N-BUTYL CYANOCRYLATE) [Suspect]

REACTIONS (2)
  - Skin necrosis [None]
  - Off label use [None]
